FAERS Safety Report 7534564-6 (Version None)
Quarter: 2011Q2

REPORT INFORMATION
  Report Type: 
  Country: None (occurrence: None)
  Receive Date: 20110609
  Receipt Date: 20090702
  Transmission Date: 20111010
  Serious: Yes (Death, Hospitalization)
  Sender: FDA-Public Use
  Company Number: PHHY2009JP14344

PATIENT
  Sex: Male
  Weight: 60 kg

DRUGS (4)
  1. NIVADIL [Concomitant]
     Indication: HYPERTENSION
     Dosage: 8 MG, UNK
     Route: 048
     Dates: start: 20080223
  2. PERDIPINE [Concomitant]
     Indication: HYPERTENSION
     Dosage: 80 MG, UNK
     Route: 048
     Dates: start: 20080211, end: 20080224
  3. BUFFERIN [Concomitant]
     Dosage: 81 MG, UNK
     Route: 048
     Dates: start: 20080225
  4. VALSARTAN [Suspect]
     Dosage: 80 MG, BID
     Route: 048
     Dates: start: 20080223

REACTIONS (2)
  - CARDIAC FAILURE [None]
  - PNEUMONIA [None]
